FAERS Safety Report 23182351 (Version 1)
Quarter: 2023Q4

REPORT INFORMATION
  Report Type: Spontaneous
  Country: US (occurrence: US)
  Receive Date: 20231114
  Receipt Date: 20231114
  Transmission Date: 20240110
  Serious: No
  Sender: FDA-Public Use
  Company Number: US-ABBVIE-5493324

PATIENT
  Sex: Female

DRUGS (1)
  1. ESTRADIOL [Suspect]
     Active Substance: ESTRADIOL
     Indication: Product used for unknown indication
     Dosage: USP 0.01%?TUBE CONTAINING 42.5 G WITH A CALIBRATED PLASTIC APPLICATOR FOR DELIVERY OF 1, 2, 3, OR...
     Route: 065

REACTIONS (1)
  - Therapeutic response shortened [Unknown]
